FAERS Safety Report 5122734-6 (Version None)
Quarter: 2006Q4

REPORT INFORMATION
  Report Type: 
  Country: None (occurrence: None)
  Receive Date: 20061004
  Receipt Date: 20060920
  Transmission Date: 20070319
  Serious: Yes (Hospitalization)
  Sender: FDA-Public Use
  Company Number: AZAES200600294

PATIENT
  Age: 72 Year
  Sex: Male

DRUGS (2)
  1. AZACITIDINE (AZACITIDINE) [Suspect]
     Indication: MYELODYSPLASTIC SYNDROME
     Dosage: 75 MG/M2 DAILY X 7 DAYS, SUBCUTANEOUS
     Route: 058
     Dates: start: 20060719, end: 20060725
  2. FLURAZEPAM [Concomitant]

REACTIONS (10)
  - ANAEMIA [None]
  - ASPERGILLOSIS [None]
  - BLOOD CULTURE POSITIVE [None]
  - CANDIDIASIS [None]
  - CHEST PAIN [None]
  - DEPRESSED LEVEL OF CONSCIOUSNESS [None]
  - FEBRILE NEUTROPENIA [None]
  - HYPOXIA [None]
  - PNEUMONIA FUNGAL [None]
  - RESPIRATORY TRACT INFECTION [None]
